FAERS Safety Report 4325808-2 (Version None)
Quarter: 2004Q1

REPORT INFORMATION
  Report Type: 
  Country: None (occurrence: None)
  Receive Date: 20040329
  Receipt Date: 20040216
  Transmission Date: 20041129
  Serious: Yes (Hospitalization)
  Sender: FDA-Public Use
  Company Number: FR-ROCHE-359043

PATIENT
  Age: 38 Year
  Sex: Male
  Weight: 53 kg

DRUGS (5)
  1. INVIRASE [Suspect]
     Indication: HIV INFECTION
     Route: 048
  2. NORVIR [Interacting]
     Indication: HIV INFECTION
     Route: 048
  3. FUCIDINE CAP [Interacting]
     Indication: HIV INFECTION
     Route: 048
     Dates: start: 20040103, end: 20040110
  4. EPIVIR [Concomitant]
     Indication: HIV INFECTION
  5. ZERIT [Concomitant]
     Indication: HIV INFECTION

REACTIONS (8)
  - DRUG INTERACTION [None]
  - PARAESTHESIA [None]
  - RASH [None]
  - TUNNEL VISION [None]
  - URTICARIA PAPULAR [None]
  - VERTIGO [None]
  - VISION BLURRED [None]
  - VISUAL DISTURBANCE [None]
